FAERS Safety Report 25111587 (Version 6)
Quarter: 2025Q3

REPORT INFORMATION
  Report Type: Report from Study
  Country: US (occurrence: US)
  Receive Date: 20250324
  Receipt Date: 20250731
  Transmission Date: 20251020
  Serious: Yes (Hospitalization)
  Sender: SUNOVION
  Company Number: US-SMPA-2025SPA003013

PATIENT

DRUGS (2)
  1. ORGOVYX [Suspect]
     Active Substance: RELUGOLIX
     Indication: Prostate cancer
     Route: 048
  2. ORGOVYX [Suspect]
     Active Substance: RELUGOLIX
     Dosage: 120 MG, QD
     Route: 048
     Dates: start: 20250306

REACTIONS (13)
  - Localised infection [Unknown]
  - Blood pressure increased [Recovering/Resolving]
  - Illness [Unknown]
  - Muscle strain [Unknown]
  - Limb injury [Unknown]
  - Palpitations [Recovered/Resolved]
  - Epistaxis [Recovering/Resolving]
  - Bradyphrenia [Unknown]
  - Feeding disorder [Unknown]
  - Vomiting [Unknown]
  - Insomnia [Recovered/Resolved]
  - Pain in extremity [Unknown]
  - Inappropriate schedule of product administration [Unknown]
